FAERS Safety Report 4576162-2 (Version None)
Quarter: 2005Q1

REPORT INFORMATION
  Report Type: 
  Country: None (occurrence: None)
  Receive Date: 20050204
  Receipt Date: 20050125
  Transmission Date: 20050727
  Serious: Yes (Death)
  Sender: FDA-Public Use
  Company Number: 2004215987FR

PATIENT
  Age: 56 Year
  Sex: Female

DRUGS (1)
  1. AROMASIN [Suspect]
     Indication: BREAST CANCER METASTATIC
     Dosage: (1 IN 1 D), ORAL
     Route: 048
     Dates: start: 20030915, end: 20040404

REACTIONS (5)
  - CARDIO-RESPIRATORY ARREST [None]
  - DIZZINESS [None]
  - PALLOR [None]
  - PULMONARY EMBOLISM [None]
  - RESPIRATORY FAILURE [None]
